FAERS Safety Report 25564031 (Version 3)
Quarter: 2025Q3

REPORT INFORMATION
  Report Type: Spontaneous
  Country: BR (occurrence: BR)
  Receive Date: 20250716
  Receipt Date: 20250918
  Transmission Date: 20251021
  Serious: Yes (Death, Other)
  Sender: MUNDIPHARMA EDO
  Company Number: BR-NAPPMUNDI-GBR-2025-0127239

PATIENT
  Age: 32 Year
  Sex: Female
  Weight: 60 kg

DRUGS (8)
  1. REZAFUNGIN ACETATE [Suspect]
     Active Substance: REZAFUNGIN ACETATE
     Indication: Systemic candida
     Dates: start: 20250702, end: 20250708
  2. RIFAMPIN [Concomitant]
     Active Substance: RIFAMPIN
     Indication: Product used for unknown indication
     Route: 065
  3. ISONIAZID [Concomitant]
     Active Substance: ISONIAZID
     Indication: Product used for unknown indication
     Route: 065
  4. ETHAMBUTOL [Concomitant]
     Active Substance: ETHAMBUTOL HYDROCHLORIDE
     Indication: Product used for unknown indication
     Route: 065
  5. PYRAZINAMIDE [Concomitant]
     Active Substance: PYRAZINAMIDE
     Indication: Product used for unknown indication
     Route: 065
  6. ACYCLOVIR [Concomitant]
     Active Substance: ACYCLOVIR
     Indication: Product used for unknown indication
  7. MEROPENEM [Concomitant]
     Active Substance: MEROPENEM
     Indication: Product used for unknown indication
  8. METHYLPREDNISOLONE [Concomitant]
     Active Substance: METHYLPREDNISOLONE
     Indication: Product used for unknown indication

REACTIONS (5)
  - Cardio-respiratory arrest [Fatal]
  - Cerebrovascular accident [Fatal]
  - Loss of consciousness [Fatal]
  - Haemodynamic instability [Fatal]
  - Acute kidney injury [Unknown]

NARRATIVE: CASE EVENT DATE: 20250708
